FAERS Safety Report 20187825 (Version 1)
Quarter: 2021Q4

REPORT INFORMATION
  Report Type: Spontaneous
  Country: US (occurrence: None)
  Receive Date: 20211215
  Receipt Date: 20211215
  Transmission Date: 20220303
  Serious: Yes (Hospitalization)
  Sender: FDA-Public Use
  Company Number: None

PATIENT
  Age: 68 Year
  Sex: Male
  Weight: 59.2 kg

DRUGS (1)
  1. DULOXETINE HYDROCHLORIDE [Suspect]
     Active Substance: DULOXETINE HYDROCHLORIDE
     Dates: end: 20211209

REACTIONS (4)
  - Hypotension [None]
  - Blood lactic acid increased [None]
  - Escherichia test positive [None]
  - Blood culture positive [None]

NARRATIVE: CASE EVENT DATE: 20211209
